FAERS Safety Report 20287336 (Version 1)
Quarter: 2022Q1

REPORT INFORMATION
  Report Type: Spontaneous
  Country: US (occurrence: US)
  Receive Date: 20220103
  Receipt Date: 20220103
  Transmission Date: 20220424
  Serious: No
  Sender: FDA-Public Use
  Company Number: US-AUROBINDO-AUR-APL-2021-001468

PATIENT
  Sex: Female
  Weight: 85.7 kg

DRUGS (4)
  1. OXYCODONE [Suspect]
     Active Substance: OXYCODONE
     Indication: Product used for unknown indication
     Dosage: UNK
     Route: 065
  2. BOSENTAN [Concomitant]
     Active Substance: BOSENTAN
     Indication: Pulmonary arterial hypertension
     Dosage: 1 TABLET TWICE DAILY
     Route: 048
     Dates: start: 20190708
  3. COUMADIN [Concomitant]
     Active Substance: WARFARIN SODIUM
     Indication: Product used for unknown indication
     Dosage: UNK
     Route: 065
  4. SILDENAFIL CITRATE [Concomitant]
     Active Substance: SILDENAFIL CITRATE
     Indication: Product used for unknown indication
     Dosage: UNK
     Route: 065

REACTIONS (1)
  - Somnolence [Unknown]
